FAERS Safety Report 13822136 (Version 1)
Quarter: 2017Q3

REPORT INFORMATION
  Report Type: Spontaneous
  Country: CN (occurrence: CN)
  Receive Date: 20170801
  Receipt Date: 20170801
  Transmission Date: 20171127
  Serious: Yes (Other)
  Sender: FDA-Public Use
  Company Number: CN-GEHC-2017CSU002278

PATIENT

DRUGS (1)
  1. OMNIPAQUE [Suspect]
     Active Substance: IOHEXOL
     Indication: PRODUCT USED FOR UNKNOWN INDICATION
     Dosage: 95 ML, SINGLE
     Route: 042
     Dates: start: 20170718, end: 20170718

REACTIONS (3)
  - Conjunctival hyperaemia [Recovered/Resolved]
  - Rash [Recovered/Resolved]
  - Pruritus [Recovered/Resolved]

NARRATIVE: CASE EVENT DATE: 20170718
